FAERS Safety Report 25180982 (Version 1)
Quarter: 2025Q2

REPORT INFORMATION
  Report Type: Report from Study
  Country: US (occurrence: US)
  Receive Date: 20250409
  Receipt Date: 20250409
  Transmission Date: 20250716
  Serious: Yes (Hospitalization)
  Sender: ABBVIE
  Company Number: US-ABBVIE-6179210

PATIENT
  Age: 35 Year
  Sex: Male
  Weight: 70.306 kg

DRUGS (4)
  1. SKYRIZI [Suspect]
     Active Substance: RISANKIZUMAB-RZAA
     Indication: Crohn^s disease
     Dosage: FORM STRENGTH: 360MG
     Route: 058
     Dates: start: 20250204
  2. SKYRIZI [Suspect]
     Active Substance: RISANKIZUMAB-RZAA
     Indication: Crohn^s disease
     Route: 042
     Dates: start: 20241112, end: 20250107
  3. Sodium Bicarb.Ped [Concomitant]
     Indication: Nephrolithiasis
  4. POTASSIUM CITRATE [Concomitant]
     Active Substance: POTASSIUM CITRATE
     Indication: Nephrolithiasis

REACTIONS (11)
  - Chest discomfort [Recovered/Resolved]
  - Herpes zoster [Recovering/Resolving]
  - Scab [Recovering/Resolving]
  - Acne [Recovering/Resolving]
  - Burning sensation [Not Recovered/Not Resolved]
  - Paraesthesia [Recovering/Resolving]
  - Limb discomfort [Recovered/Resolved]
  - Speech disorder [Recovered/Resolved]
  - Pruritus [Not Recovered/Not Resolved]
  - Hypoaesthesia [Recovering/Resolving]
  - Hypoaesthesia [Not Recovered/Not Resolved]

NARRATIVE: CASE EVENT DATE: 20250301
